FAERS Safety Report 19786548 (Version 2)
Quarter: 2021Q4

REPORT INFORMATION
  Report Type: Spontaneous
  Country: US (occurrence: None)
  Receive Date: 20210903
  Receipt Date: 20211104
  Transmission Date: 20220303
  Serious: No
  Sender: FDA-Public Use
  Company Number: 2021A697258

PATIENT
  Sex: Male
  Weight: 74.8 kg

DRUGS (1)
  1. SYMBICORT [Suspect]
     Active Substance: BUDESONIDE\FORMOTEROL FUMARATE DIHYDRATE
     Indication: Asthma
     Dosage: 160MCG/4.5 MCG 2 PUFFS TWICE DAILY
     Route: 055

REACTIONS (3)
  - Hyperaesthesia teeth [Unknown]
  - Wrong technique in device usage process [Unknown]
  - Device malfunction [Unknown]
